FAERS Safety Report 15727482 (Version 1)
Quarter: 2018Q4

REPORT INFORMATION
  Report Type: Spontaneous
  Country: US (occurrence: US)
  Receive Date: 20181217
  Receipt Date: 20181217
  Transmission Date: 20190205
  Serious: No
  Sender: FDA-Public Use
  Company Number: US-TEVA-824098ACC

PATIENT
  Sex: Female

DRUGS (1)
  1. BUPROPION. [Suspect]
     Active Substance: BUPROPION
     Indication: DEPRESSION
     Dosage: TAKING THE PRODUCT FOR ABOUT 12 YEARS

REACTIONS (4)
  - Urticaria [Unknown]
  - Alopecia [Unknown]
  - Pruritus [Unknown]
  - Depressed mood [Unknown]
